FAERS Safety Report 8932584 (Version 1)
Quarter: 2012Q4

REPORT INFORMATION
  Report Type: 
  Country: AR (occurrence: AR)
  Receive Date: 20121129
  Receipt Date: 20121129
  Transmission Date: 20130627
  Serious: Yes (Other)
  Sender: FDA-Public Use
  Company Number: PHHY2012AR107847

PATIENT
  Sex: Female

DRUGS (1)
  1. DIOVAN [Suspect]
     Indication: HYPERTENSION
     Dosage: 160 mg, daily
     Route: 048
     Dates: start: 2010, end: 201210

REACTIONS (2)
  - Thyroid neoplasm [Not Recovered/Not Resolved]
  - Drug ineffective [Recovered/Resolved]
